FAERS Safety Report 10717649 (Version 1)
Quarter: 2015Q1

REPORT INFORMATION
  Report Type: Spontaneous
  Country: BR (occurrence: BR)
  Receive Date: 20150116
  Receipt Date: 20150116
  Transmission Date: 20150721
  Serious: Yes (Other)
  Sender: FDA-Public Use
  Company Number: BR-BAXTER-2015BAX001401

PATIENT
  Sex: Female
  Weight: 2.7 kg

DRUGS (1)
  1. BAXTER GLICOSE 10% - 250 ML [Suspect]
     Active Substance: DEXTROSE
     Indication: PRODUCT USED FOR UNKNOWN INDICATION
     Route: 042
     Dates: start: 20141207, end: 20141207

REACTIONS (1)
  - Vasospasm [Recovered/Resolved]

NARRATIVE: CASE EVENT DATE: 20141207
